FAERS Safety Report 8791416 (Version 2)
Quarter: 2012Q4

REPORT INFORMATION
  Report Type: Spontaneous
  Country: US (occurrence: None)
  Receive Date: 20120911
  Receipt Date: 20121022
  Transmission Date: 20130627
  Serious: Yes (Other)
  Sender: FDA-Public Use
  Company Number: 2012SGN00395

PATIENT
  Age: 72 Year
  Sex: Male

DRUGS (1)
  1. ADCETRIS [Suspect]
     Indication: ANAPLASTIC LARGE-CELL LYMPHOMA, PRIMARY SYSTEMIC TYPE
     Dosage: 3, unk, unk

REACTIONS (2)
  - Interstitial lung disease [None]
  - Pyrexia [None]
